FAERS Safety Report 8107397-X (Version None)
Quarter: 2012Q1

REPORT INFORMATION
  Report Type: 
  Country: None (occurrence: None)
  Receive Date: 20120202
  Receipt Date: 20120125
  Transmission Date: 20120608
  Serious: Yes (Death, Life-Threatening, Hospitalization)
  Sender: FDA-Public Use
  Company Number: CA-MEDIMMUNE-MEDI-0014622

PATIENT
  Sex: Female
  Weight: 8.46 kg

DRUGS (1)
  1. SYNAGIS [Suspect]
     Route: 030
     Dates: start: 20111116, end: 20111207

REACTIONS (3)
  - APNOEA [None]
  - VOMITING [None]
  - CARDIAC ARREST [None]
